FAERS Safety Report 4502699-8 (Version None)
Quarter: 2004Q4

REPORT INFORMATION
  Report Type: 
  Country: None (occurrence: None)
  Receive Date: 20041109
  Receipt Date: 20041022
  Transmission Date: 20050328
  Serious: No
  Sender: FDA-Public Use
  Company Number: 9163

PATIENT
  Age: 47 Year
  Sex: Male

DRUGS (8)
  1. LEUCOVORIN [Suspect]
     Indication: RECTAL CANCER
     Dosage: 75 MG PO
     Route: 048
     Dates: start: 20040708, end: 20040729
  2. TEGAFUR [Suspect]
     Indication: RECTAL CANCER
     Dosage: 500 MG PO
     Route: 048
     Dates: start: 20040708, end: 20040729
  3. URSODEOXYCHOLIC ACID [Concomitant]
  4. AMLODIPINE [Concomitant]
  5. RANITIDINE [Concomitant]
  6. MAGNESIUM OXIDE [Concomitant]
  7. FUROSEMIDE [Concomitant]
  8. SPIRONOLACTONE [Concomitant]

REACTIONS (7)
  - ANOREXIA [None]
  - BLOOD ALKALINE PHOSPHATASE ABNORMAL [None]
  - BLOOD BILIRUBIN INCREASED [None]
  - DIARRHOEA [None]
  - HAEMATOCRIT DECREASED [None]
  - HAEMOGLOBIN DECREASED [None]
  - RED BLOOD CELL COUNT ABNORMAL [None]
